FAERS Safety Report 4724720-4 (Version None)
Quarter: 2005Q3

REPORT INFORMATION
  Report Type: 
  Country: None (occurrence: None)
  Receive Date: 20050720
  Receipt Date: 20050720
  Transmission Date: 20060218
  Serious: No
  Sender: FDA-Public Use
  Company Number: None

PATIENT
  Age: 32 Year
  Sex: Female
  Weight: 64.4108 kg

DRUGS (2)
  1. SEASONALE [Suspect]
     Indication: ENDOMETRIOSIS
     Dosage: ONE DAILY    ORAL
     Route: 048
     Dates: start: 20050702, end: 20050716
  2. SEASONALE [Suspect]
     Indication: PAIN
     Dosage: ONE DAILY    ORAL
     Route: 048
     Dates: start: 20050702, end: 20050716

REACTIONS (9)
  - ANXIETY [None]
  - CHEST PAIN [None]
  - FATIGUE [None]
  - LETHARGY [None]
  - MOOD ALTERED [None]
  - MYALGIA [None]
  - OEDEMA PERIPHERAL [None]
  - SENSORY DISTURBANCE [None]
  - STOMACH DISCOMFORT [None]
